FAERS Safety Report 6944551-4 (Version None)
Quarter: 2010Q3

REPORT INFORMATION
  Report Type: 
  Country: None (occurrence: None)
  Receive Date: 20100827
  Receipt Date: 20100813
  Transmission Date: 20110219
  Serious: Yes (Other)
  Sender: FDA-Public Use
  Company Number: US-ELI_LILLY_AND_COMPANY-US201008006031

PATIENT
  Sex: Female

DRUGS (10)
  1. FORTEO [Suspect]
     Indication: OSTEOPOROSIS
     Dosage: 20 UG, DAILY (1/D)
  2. POTASSIUM [Concomitant]
  3. FUROSEMIDE [Concomitant]
  4. AVAPRO [Concomitant]
  5. VITAMIN D [Concomitant]
     Dosage: 50000 U, WEEKLY (1/W)
  6. CALCIUM [Concomitant]
     Dosage: 1000 MG, UNK
  7. PEPCID [Concomitant]
  8. TYLENOL (CAPLET) [Concomitant]
  9. PREMARIN [Concomitant]
     Dosage: UNK, 3/W
  10. MYLANTA [Concomitant]

REACTIONS (9)
  - ASTHENIA [None]
  - ERYTHEMA [None]
  - INJECTION SITE PAIN [None]
  - PLATELET COUNT INCREASED [None]
  - POLYCYTHAEMIA VERA [None]
  - PRURITUS [None]
  - RED BLOOD CELL COUNT INCREASED [None]
  - WEIGHT DECREASED [None]
  - WHITE BLOOD CELL COUNT INCREASED [None]
